FAERS Safety Report 8819778 (Version 3)
Quarter: 2012Q4

REPORT INFORMATION
  Report Type: 
  Country: US (occurrence: US)
  Receive Date: 20121001
  Receipt Date: 20121120
  Transmission Date: 20130627
  Serious: Yes (Hospitalization)
  Sender: FDA-Public Use
  Company Number: US-CELGENEUS-163-20785-12092948

PATIENT
  Age: 86 Year
  Sex: Female

DRUGS (21)
  1. THALOMID [Suspect]
     Indication: MULTIPLE MYELOMA
     Dosage: 100 Milligram
     Route: 048
     Dates: start: 200706
  2. THALOMID [Suspect]
     Dosage: 100 Milligram
     Route: 048
     Dates: start: 20100414
  3. THALOMID [Suspect]
     Dosage: 100 Milligram
     Route: 048
     Dates: start: 20111114, end: 20111212
  4. THALOMID [Suspect]
     Dosage: 100 Milligram
     Route: 048
     Dates: start: 20120802, end: 20120830
  5. THALOMID [Suspect]
     Dosage: 100 Milligram
     Route: 048
     Dates: start: 20120921
  6. ACETAMINOPHEN [Concomitant]
     Indication: DRUG USE FOR UNKNOWN INDICATION
     Dosage: 2600 Milligram
     Route: 048
  7. ASCORBIC ACID [Concomitant]
     Indication: DRUG USE FOR UNKNOWN INDICATION
     Dosage: 1000 Milligram
     Route: 048
  8. ASPIRIN [Concomitant]
     Indication: DRUG USE FOR UNKNOWN INDICATION
     Dosage: 325 Milligram
     Route: 048
  9. ATORVASTATIN [Concomitant]
     Indication: DRUG USE FOR UNKNOWN INDICATION
     Dosage: 40 Milligram
     Route: 048
     Dates: start: 20120802
  10. ATORVASTATIN [Concomitant]
     Dosage: 40 Milligram
     Route: 048
     Dates: start: 20120806
  11. DOCOSAHEXANOIC ACID- VIT C-LUTEIN [Concomitant]
     Indication: DRUG USE FOR UNKNOWN INDICATION
     Dosage: 180-15-5 mg
     Route: 048
     Dates: start: 20120802
  12. FUROSEMIDE [Concomitant]
     Indication: DRUG USE FOR UNKNOWN INDICATION
     Dosage: 60 Milligram
     Route: 048
     Dates: start: 20120802
  13. FUROSEMIDE [Concomitant]
     Dosage: 40 Milligram
     Route: 048
     Dates: start: 20120806
  14. LEVOTHYROXINE [Concomitant]
     Indication: DRUG USE FOR UNKNOWN INDICATION
     Dosage: 75 Microgram
     Route: 048
     Dates: start: 20120802, end: 20120802
  15. LEVOTHYROXINE [Concomitant]
     Dosage: 75 Microgram
     Route: 048
     Dates: start: 20120806
  16. METOPROLOL TARTRATE [Concomitant]
     Indication: DRUG USE FOR UNKNOWN INDICATION
     Dosage: 1 Milligram
     Route: 048
     Dates: start: 20120802, end: 20120802
  17. PAROXETINE [Concomitant]
     Indication: DRUG USE FOR UNKNOWN INDICATION
     Dosage: 10 Milligram
     Route: 048
     Dates: start: 20120802
  18. PAROXETINE [Concomitant]
     Dosage: 10 Milligram
     Route: 048
     Dates: start: 20120806
  19. POTASSIUM CHLORIDE [Concomitant]
     Indication: DRUG USE FOR UNKNOWN INDICATION
     Dosage: 20 Milliequivalents
     Route: 048
     Dates: start: 20120802
  20. POTASSIUM CHLORIDE [Concomitant]
     Dosage: 20 Milliequivalents
     Route: 048
     Dates: start: 20120806
  21. SENNA [Concomitant]
     Indication: DRUG USE FOR UNKNOWN INDICATION
     Dosage: 17.2 Milligram
     Route: 048
     Dates: start: 20120802, end: 20120802

REACTIONS (2)
  - Fall [Recovering/Resolving]
  - Thoracic vertebral fracture [Recovering/Resolving]
